FAERS Safety Report 13921428 (Version 2)
Quarter: 2017Q4

REPORT INFORMATION
  Report Type: Spontaneous
  Country: BR (occurrence: BR)
  Receive Date: 20170830
  Receipt Date: 20171120
  Transmission Date: 20180320
  Serious: Yes (Hospitalization)
  Sender: FDA-Public Use
  Company Number: BR-ABBVIE-17P-020-2086928-00

PATIENT
  Age: 42 Year
  Sex: Female
  Weight: 65 kg

DRUGS (6)
  1. DIGEPLUS [Concomitant]
     Indication: ABDOMINAL DISTENSION
     Route: 048
     Dates: start: 2016
  2. PANTOPRAZOLE [Concomitant]
     Active Substance: PANTOPRAZOLE
     Indication: ULCER
     Dosage: IN THE MORNING AND AT NIGHT; WHEN NECESSARY
     Route: 048
     Dates: start: 2012
  3. CREON [Suspect]
     Active Substance: PANCRELIPASE AMYLASE\PANCRELIPASE LIPASE\PANCRELIPASE PROTEASE
     Indication: DIARRHOEA
  4. DESOGESTREL [Concomitant]
     Active Substance: DESOGESTREL
     Indication: CONTRACEPTION
     Route: 048
  5. VONAU [Concomitant]
     Active Substance: ONDANSETRON HYDROCHLORIDE
     Indication: NAUSEA
     Dosage: WHEN PRESENTS NAUSEA
     Route: 048
  6. CREON [Suspect]
     Active Substance: PANCRELIPASE AMYLASE\PANCRELIPASE LIPASE\PANCRELIPASE PROTEASE
     Indication: MALABSORPTION
     Dosage: DAILY DOSE: 9 CAPSULES; IN THE MORNING, AT MIDDAY AND AT NIGHT
     Route: 065
     Dates: start: 2017, end: 2017

REACTIONS (16)
  - Product use in unapproved indication [Unknown]
  - Diarrhoea [Not Recovered/Not Resolved]
  - Vomiting [Recovered/Resolved]
  - Jejunal ulcer [Recovering/Resolving]
  - Therapy cessation [Unknown]
  - Eating disorder [Not Recovered/Not Resolved]
  - Clostridial infection [Not Recovered/Not Resolved]
  - Decreased appetite [Recovered/Resolved]
  - Weight decreased [Recovered/Resolved]
  - Nausea [Not Recovered/Not Resolved]
  - Gastrointestinal candidiasis [Recovered/Resolved]
  - Gastric ulcer [Not Recovered/Not Resolved]
  - Haematochezia [Not Recovered/Not Resolved]
  - Asthenia [Not Recovered/Not Resolved]
  - Abdominal pain [Not Recovered/Not Resolved]
  - Polyp [Recovered/Resolved]

NARRATIVE: CASE EVENT DATE: 20170717
